FAERS Safety Report 5650305-1 (Version None)
Quarter: 2008Q1

REPORT INFORMATION
  Report Type: 
  Country: None (occurrence: None)
  Receive Date: 20080304
  Receipt Date: 20080304
  Transmission Date: 20080703
  Serious: Yes (Hospitalization)
  Sender: FDA-Public Use
  Company Number: None

PATIENT
  Sex: Female

DRUGS (1)
  1. ZYPREXA [Suspect]
     Dosage: PO
     Route: 048
     Dates: start: 20080209, end: 20080227

REACTIONS (5)
  - DRUG DISPENSING ERROR [None]
  - FALL [None]
  - MEDICATION ERROR [None]
  - MENTAL STATUS CHANGES [None]
  - WRONG DRUG ADMINISTERED [None]
